FAERS Safety Report 25169998 (Version 1)
Quarter: 2025Q2

REPORT INFORMATION
  Report Type: Spontaneous
  Country: EE (occurrence: EE)
  Receive Date: 20250407
  Receipt Date: 20250407
  Transmission Date: 20250716
  Serious: Yes (Other)
  Sender: JOHNSON AND JOHNSON
  Company Number: EE-JNJFOC-20250387429

PATIENT
  Age: 3 Decade

DRUGS (2)
  1. SPRAVATO [Suspect]
     Active Substance: ESKETAMINE
     Indication: Major depression
     Route: 045
     Dates: start: 20241004
  2. CYPROTERONE [Concomitant]
     Active Substance: CYPROTERONE

REACTIONS (3)
  - Suicidal ideation [Recovering/Resolving]
  - Incorrect dose administered [Unknown]
  - Dysphemia [Recovering/Resolving]

NARRATIVE: CASE EVENT DATE: 20241004
